FAERS Safety Report 9328882 (Version 1)
Quarter: 2013Q2

REPORT INFORMATION
  Report Type: Spontaneous
  Country: US (occurrence: US)
  Receive Date: 20130604
  Receipt Date: 20130604
  Transmission Date: 20140414
  Serious: No
  Sender: FDA-Public Use
  Company Number: US-SANOFI-AVENTIS-2013SA019379

PATIENT
  Age: 64 Year
  Sex: Female
  Weight: 61.23 kg

DRUGS (13)
  1. LANTUS [Suspect]
     Indication: TYPE 2 DIABETES MELLITUS
     Dosage: DOSE:20 UNIT(S)
     Route: 051
     Dates: start: 20130127, end: 20130303
  2. NPH INSULIN [Suspect]
  3. HEPARIN [Concomitant]
  4. METFORMIN [Concomitant]
  5. HUMALOG [Concomitant]
     Dosage: 8 AM, 12 PM AND 5 PM DOSE:4 UNIT(S)
     Route: 058
  6. GLIPIZIDE [Concomitant]
  7. ACETAMINOPHEN [Concomitant]
  8. ANTACIDS [Concomitant]
  9. CALCIUM [Concomitant]
  10. LORTAB [Concomitant]
  11. CITALOPRAM [Concomitant]
     Route: 048
  12. LISINOPRIL [Concomitant]
     Route: 048
  13. LEVOTHYROXINE [Concomitant]
     Route: 048

REACTIONS (5)
  - Dyspepsia [Recovered/Resolved]
  - Diarrhoea [Recovered/Resolved]
  - Asthenia [Unknown]
  - Muscle spasms [Recovered/Resolved]
  - Sensation of pressure [Recovered/Resolved]
